FAERS Safety Report 10206476 (Version 1)
Quarter: 2014Q2

REPORT INFORMATION
  Report Type: Spontaneous
  Country: US (occurrence: None)
  Receive Date: 20140527
  Receipt Date: 20140527
  Transmission Date: 20141212
  Serious: Yes (Life-Threatening, Disabling)
  Sender: FDA-Public Use
  Company Number: None

PATIENT
  Age: 53 Year
  Sex: Female
  Weight: 56.7 kg

DRUGS (1)
  1. MIRTAZAPINE [Suspect]
     Indication: DEPRESSION
     Dates: start: 20131004, end: 20131006

REACTIONS (6)
  - Generalised tonic-clonic seizure [None]
  - Intervertebral disc protrusion [None]
  - Headache [None]
  - Muscle tightness [None]
  - Muscle tightness [None]
  - Drug interaction [None]
